FAERS Safety Report 8843086 (Version 1)
Quarter: 2012Q4

REPORT INFORMATION
  Report Type: 
  Country: RU (occurrence: RU)
  Receive Date: 20121016
  Receipt Date: 20121016
  Transmission Date: 20130627
  Serious: Yes (Hospitalization, Other)
  Sender: FDA-Public Use
  Company Number: RU-ROCHE-1145483

PATIENT
  Sex: Female

DRUGS (3)
  1. BONVIVA [Suspect]
     Indication: OSTEOARTHRITIS
     Route: 048
  2. BONVIVA [Suspect]
     Indication: OSTEOARTHRITIS
     Route: 042
  3. PREDNISOLONE [Concomitant]

REACTIONS (2)
  - Gastric disorder [Not Recovered/Not Resolved]
  - Rheumatoid arthritis [Not Recovered/Not Resolved]
